FAERS Safety Report 25000386 (Version 1)
Quarter: 2025Q1

REPORT INFORMATION
  Report Type: Spontaneous
  Country: US (occurrence: US)
  Receive Date: 20250222
  Receipt Date: 20250222
  Transmission Date: 20250408
  Serious: No
  Sender: SANOFI AVENTIS
  Company Number: US-SA-2025SA051477

PATIENT
  Age: 14 Year
  Sex: Female

DRUGS (15)
  1. REZUROCK [Suspect]
     Active Substance: BELUMOSUDIL
     Indication: Chronic graft versus host disease
     Dosage: 200 MG, QD
     Route: 048
  2. ATOVAQUONE [Concomitant]
     Active Substance: ATOVAQUONE
  3. CARBOXYMETHYLCELLULOSE SODIUM [Concomitant]
     Active Substance: CARBOXYMETHYLCELLULOSE SODIUM
  4. CLOBETASOL [Concomitant]
     Active Substance: CLOBETASOL
  5. ESTRADIOL [Concomitant]
     Active Substance: ESTRADIOL
  6. FAMOTIDINE [Concomitant]
     Active Substance: FAMOTIDINE
  7. HYDROCORTISONE [Concomitant]
     Active Substance: HYDROCORTISONE
  8. PENICILLIN [Concomitant]
     Active Substance: PENICILLIN
  9. POSACONAZOLE [Concomitant]
     Active Substance: POSACONAZOLE
  10. PREDNISONE [Concomitant]
     Active Substance: PREDNISONE
  11. PREVYMIS [Concomitant]
     Active Substance: LETERMOVIR
  12. RESTASIS [Concomitant]
     Active Substance: CYCLOSPORINE
  13. PROGESTERONE [Concomitant]
     Active Substance: PROGESTERONE
  14. VALACYCLOVIR [Concomitant]
     Active Substance: VALACYCLOVIR HYDROCHLORIDE
  15. VITAMIN D3 [Concomitant]
     Active Substance: CHOLECALCIFEROL

REACTIONS (1)
  - Hepatic enzyme increased [Not Recovered/Not Resolved]
